FAERS Safety Report 13652729 (Version 1)
Quarter: 2017Q2

REPORT INFORMATION
  Report Type: Spontaneous
  Country: US (occurrence: US)
  Receive Date: 20170614
  Receipt Date: 20170614
  Transmission Date: 20170830
  Serious: No
  Sender: FDA-Public Use
  Company Number: US-ROCHE-1005925

PATIENT
  Age: 56 Year
  Sex: Female
  Weight: 68.1 kg

DRUGS (6)
  1. HERCEPTIN [Concomitant]
     Active Substance: TRASTUZUMAB
     Indication: BREAST CANCER
     Route: 042
     Dates: start: 20071119
  2. XELODA [Suspect]
     Active Substance: CAPECITABINE
     Indication: BRAIN NEOPLASM MALIGNANT
     Dosage: 21 FDAYS OFF, 7 DAYS ON
     Route: 065
     Dates: start: 20100419, end: 20110808
  3. ZOMETA [Concomitant]
     Active Substance: ZOLEDRONIC ACID
     Indication: METASTASES TO BONE
     Route: 042
     Dates: start: 20071012
  4. TYKERB [Concomitant]
     Active Substance: LAPATINIB DITOSYLATE
     Indication: BREAST CANCER
     Dosage: FREQUENCY: ON AND OFF
     Route: 048
     Dates: start: 20100419
  5. SYNTHROID [Concomitant]
     Active Substance: LEVOTHYROXINE SODIUM
     Route: 048
  6. TRICOR [Concomitant]
     Active Substance: FENOFIBRATE
     Indication: HYPERCHOLESTEROLAEMIA
     Route: 048

REACTIONS (2)
  - Abdominal discomfort [Recovering/Resolving]
  - Diarrhoea [Recovering/Resolving]

NARRATIVE: CASE EVENT DATE: 20110808
